FAERS Safety Report 11218279 (Version 1)
Quarter: 2015Q2

REPORT INFORMATION
  Report Type: Report from Study
  Country: FR (occurrence: FR)
  Receive Date: 20150625
  Receipt Date: 20150625
  Transmission Date: 20150821
  Serious: Yes (Death)
  Sender: FDA-Public Use
  Company Number: FR-ROCHE-1151417

PATIENT

DRUGS (6)
  1. DOXORUBICIN [Suspect]
     Active Substance: DOXORUBICIN
     Indication: ANGIOIMMUNOBLASTIC T-CELL LYMPHOMA
     Dosage: ON DAY 1
     Route: 065
  2. PREDNISONE. [Suspect]
     Active Substance: PREDNISONE
     Indication: ANGIOIMMUNOBLASTIC T-CELL LYMPHOMA
     Dosage: DAYS 1-5
     Route: 065
  3. METHOTREXATE [Suspect]
     Active Substance: METHOTREXATE
     Indication: ANGIOIMMUNOBLASTIC T-CELL LYMPHOMA
     Dosage: DAY 1
     Route: 037
  4. CYCLOPHOSPHAMIDE. [Suspect]
     Active Substance: CYCLOPHOSPHAMIDE
     Indication: ANGIOIMMUNOBLASTIC T-CELL LYMPHOMA
     Route: 065
  5. RITUXIMAB [Suspect]
     Active Substance: RITUXIMAB
     Indication: ANGIOIMMUNOBLASTIC T-CELL LYMPHOMA
     Route: 042
  6. VINCRISTINE [Suspect]
     Active Substance: VINCRISTINE
     Indication: ANGIOIMMUNOBLASTIC T-CELL LYMPHOMA
     Dosage: CAPPED AT 2 MG
     Route: 065

REACTIONS (1)
  - Chronic inflammatory demyelinating polyradiculoneuropathy [Fatal]
